FAERS Safety Report 9729652 (Version 1)
Quarter: 2013Q4

REPORT INFORMATION
  Report Type: Spontaneous
  Country: US (occurrence: US)
  Receive Date: 20131204
  Receipt Date: 20131204
  Transmission Date: 20140711
  Serious: No
  Sender: FDA-Public Use
  Company Number: US-GILEAD-2009-0020890

PATIENT
  Sex: Female
  Weight: 117.93 kg

DRUGS (13)
  1. LETAIRIS [Suspect]
     Indication: PULMONARY ARTERIAL HYPERTENSION
     Route: 048
     Dates: start: 20080118
  2. REVATIO [Concomitant]
  3. EXFORGE [Concomitant]
  4. ZOCOR [Concomitant]
  5. ASPIRIN [Concomitant]
  6. COUMADIN [Concomitant]
  7. LASIX [Concomitant]
  8. SINGULAIR [Concomitant]
  9. METFORMIN [Concomitant]
  10. GLIMEPIRIDE [Concomitant]
  11. GLIPIZIDE XL [Concomitant]
  12. POTASSIUM CHLORIDE [Concomitant]
  13. CO Q-10 [Concomitant]

REACTIONS (2)
  - Dyspnoea [Recovered/Resolved]
  - Oedema peripheral [Recovered/Resolved]
